FAERS Safety Report 10417299 (Version 1)
Quarter: 2014Q3

REPORT INFORMATION
  Report Type: Spontaneous
  Country: US (occurrence: US)
  Receive Date: 20140828
  Receipt Date: 20140828
  Transmission Date: 20150326
  Serious: Yes (Other)
  Sender: FDA-Public Use
  Company Number: US-DSJP-DSU-2014-119641

PATIENT

DRUGS (6)
  1. BENICAR [Suspect]
     Active Substance: OLMESARTAN MEDOXOMIL
     Indication: HYPERTENSION
     Dosage: 1/2 (40MG) QD
     Route: 048
     Dates: end: 2014
  2. COLACE [Suspect]
     Active Substance: DOCUSATE SODIUM
     Indication: PRODUCT USED FOR UNKNOWN INDICATION
     Dosage: UNK
     Route: 048
     Dates: start: 201406
  3. ACE INHIBITORS [INGREDIENTS UNKNOWN] [Suspect]
     Active Substance: UNSPECIFIED INGREDIENT
     Indication: HYPERTENSION
     Dosage: UNK
     Route: 048
     Dates: start: 201408, end: 201408
  4. BENICAR [Suspect]
     Active Substance: OLMESARTAN MEDOXOMIL
     Dosage: UNK UNK, QD
     Route: 048
     Dates: start: 2014, end: 20140824
  5. BENICAR [Suspect]
     Active Substance: OLMESARTAN MEDOXOMIL
     Dosage: 1/2 (20 MG) QD
     Route: 048
     Dates: start: 20140824
  6. BLOOD PRESSURE MEDICATION [INGREDIENTS UNKNOWN] [Suspect]
     Active Substance: UNSPECIFIED INGREDIENT
     Indication: HYPERTENSION
     Dosage: UNK
     Route: 048
     Dates: start: 201408, end: 201408

REACTIONS (8)
  - Nephrolithiasis [Recovered/Resolved]
  - Drug administration error [Unknown]
  - Pharyngeal oedema [Recovered/Resolved]
  - Heart rate increased [Unknown]
  - Sinus disorder [Recovered/Resolved]
  - Feeling abnormal [Unknown]
  - Dizziness [Recovered/Resolved]
  - Wrong technique in drug usage process [None]

NARRATIVE: CASE EVENT DATE: 201406
